FAERS Safety Report 21294154 (Version 2)
Quarter: 2022Q3

REPORT INFORMATION
  Report Type: Spontaneous
  Country: FR (occurrence: FR)
  Receive Date: 20220905
  Receipt Date: 20220913
  Transmission Date: 20221027
  Serious: Yes (Hospitalization, Other)
  Sender: FDA-Public Use
  Company Number: FR-NOVARTISPH-NVSC2022FR148401

PATIENT
  Sex: Female

DRUGS (20)
  1. ADAKVEO [Suspect]
     Active Substance: CRIZANLIZUMAB-TMCA
     Indication: Sickle cell disease
     Dosage: 300 MG, 3 BOTTLES OF 100MG
     Route: 042
     Dates: start: 20201216, end: 20201216
  2. ADAKVEO [Suspect]
     Active Substance: CRIZANLIZUMAB-TMCA
     Dosage: 300 MG, 3 BOTTLES OF 100MG
     Route: 065
     Dates: start: 20201230, end: 20201230
  3. ADAKVEO [Suspect]
     Active Substance: CRIZANLIZUMAB-TMCA
     Dosage: 300 MG, 3 BOTTLES OF 100MG
     Route: 065
     Dates: start: 20210127, end: 20210127
  4. ADAKVEO [Suspect]
     Active Substance: CRIZANLIZUMAB-TMCA
     Dosage: 300 MG, 3 BOTTLES OF 100MG
     Route: 065
     Dates: start: 20210316, end: 20210316
  5. ADAKVEO [Suspect]
     Active Substance: CRIZANLIZUMAB-TMCA
     Dosage: 300 MG, 3 BOTTLES OF 100MG
     Route: 065
     Dates: start: 20210408, end: 20210408
  6. ADAKVEO [Suspect]
     Active Substance: CRIZANLIZUMAB-TMCA
     Dosage: 300 MG, 3 BOTTLES OF 100MG
     Route: 065
     Dates: start: 20210506, end: 20210506
  7. ADAKVEO [Suspect]
     Active Substance: CRIZANLIZUMAB-TMCA
     Dosage: 300 MG, 3 BOTTLES OF 100MG
     Route: 065
     Dates: start: 20210603, end: 20210603
  8. ADAKVEO [Suspect]
     Active Substance: CRIZANLIZUMAB-TMCA
     Dosage: 300 MG, 3 BOTTLES OF 100MG
     Route: 065
     Dates: start: 20210630, end: 20210630
  9. ADAKVEO [Suspect]
     Active Substance: CRIZANLIZUMAB-TMCA
     Dosage: 300 MG, 3 BOTTLES OF 100MG
     Route: 065
     Dates: start: 20210729, end: 20210729
  10. ADAKVEO [Suspect]
     Active Substance: CRIZANLIZUMAB-TMCA
     Dosage: 300 MG, 3 BOTTLES OF 100MG
     Route: 065
     Dates: start: 20210921, end: 20210921
  11. ADAKVEO [Suspect]
     Active Substance: CRIZANLIZUMAB-TMCA
     Dosage: 300 MG, 3 BOTTLES OF 100MG
     Route: 065
     Dates: start: 20211020, end: 20211020
  12. ADAKVEO [Suspect]
     Active Substance: CRIZANLIZUMAB-TMCA
     Dosage: 300 MG, 3 BOTTLES OF 100MG
     Route: 065
     Dates: start: 20211125, end: 20211125
  13. ADAKVEO [Suspect]
     Active Substance: CRIZANLIZUMAB-TMCA
     Dosage: 300 MG, 3 BOTTLES OF 100MG
     Route: 065
     Dates: start: 20211229, end: 20211229
  14. ADAKVEO [Suspect]
     Active Substance: CRIZANLIZUMAB-TMCA
     Dosage: 300 MG, 3 BOTTLES OF 100MG
     Route: 065
     Dates: start: 20220204, end: 20220204
  15. ADAKVEO [Suspect]
     Active Substance: CRIZANLIZUMAB-TMCA
     Dosage: 300 MG, 3 BOTTLES OF 100MG
     Route: 065
     Dates: start: 20220307, end: 20220307
  16. ADAKVEO [Suspect]
     Active Substance: CRIZANLIZUMAB-TMCA
     Dosage: 300 MG, 3 BOTTLES OF 100MG
     Route: 065
     Dates: start: 20220406, end: 20220406
  17. ADAKVEO [Suspect]
     Active Substance: CRIZANLIZUMAB-TMCA
     Dosage: 300 MG, 3 BOTTLES OF 100MG
     Route: 065
     Dates: start: 20220510, end: 20220510
  18. ADAKVEO [Suspect]
     Active Substance: CRIZANLIZUMAB-TMCA
     Dosage: 300 MG, 3 BOTTLES OF 100MG
     Route: 065
     Dates: start: 20220607, end: 20220607
  19. ADAKVEO [Suspect]
     Active Substance: CRIZANLIZUMAB-TMCA
     Dosage: 300 MG, 3 BOTTLES OF 100MG
     Route: 065
     Dates: start: 20220726, end: 20220726
  20. SIKLOS [Concomitant]
     Active Substance: HYDROXYUREA
     Indication: Product used for unknown indication
     Dosage: UNK
     Route: 065

REACTIONS (8)
  - Pulmonary embolism [Unknown]
  - Pneumonia [Unknown]
  - Hepatic failure [Unknown]
  - Acute chest syndrome [Unknown]
  - Drug ineffective [Not Recovered/Not Resolved]
  - Osteonecrosis [Unknown]
  - Sickle cell anaemia with crisis [Not Recovered/Not Resolved]
  - Disease recurrence [Not Recovered/Not Resolved]

NARRATIVE: CASE EVENT DATE: 20220301
